FAERS Safety Report 12091615 (Version 13)
Quarter: 2021Q1

REPORT INFORMATION
  Report Type: Spontaneous
  Country: FR (occurrence: FR)
  Receive Date: 20160218
  Receipt Date: 20210114
  Transmission Date: 20210419
  Serious: Yes (Hospitalization, Other)
  Sender: FDA-Public Use
  Company Number: FR-ABBVIE-16P-056-1562608-00

PATIENT
  Age: 58 Year
  Sex: Female
  Weight: 70 kg

DRUGS (32)
  1. DUROLANE [Concomitant]
     Active Substance: HYALURONIC ACID
     Indication: PRODUCT USED FOR UNKNOWN INDICATION
     Dosage: UNK
     Dates: end: 2011
  2. ENANTONE LP [Suspect]
     Active Substance: LEUPROLIDE ACETATE
     Dosage: UNK
     Route: 065
     Dates: start: 20021020, end: 20021020
  3. ENANTONE LP [Suspect]
     Active Substance: LEUPROLIDE ACETATE
     Dosage: UNK
     Route: 065
     Dates: start: 20040123, end: 20040123
  4. LAROXYL [Concomitant]
     Active Substance: AMITRIPTYLINE HYDROCHLORIDE
     Indication: PRODUCT USED FOR UNKNOWN INDICATION
     Dosage: UNK
     Dates: start: 200411
  5. COLOPEG [Concomitant]
     Active Substance: POLYETHYLENE GLYCOL 3350\POTASSIUM CHLORIDE\SODIUM BICARBONATE\SODIUM CHLORIDE\SODIUM SULFATE
     Indication: PRODUCT USED FOR UNKNOWN INDICATION
     Dosage: UNK
     Dates: start: 20030322
  6. MYOLASTAN [Concomitant]
     Active Substance: TETRAZEPAM
     Indication: PRODUCT USED FOR UNKNOWN INDICATION
     Dosage: UNK
     Dates: start: 2010
  7. LEVOCARNIL                         /00878601/ [Concomitant]
     Active Substance: LEVOCARNITINE
     Indication: PRODUCT USED FOR UNKNOWN INDICATION
     Dosage: UNK
     Dates: start: 2010
  8. GENTALLINE [Concomitant]
     Active Substance: GENTAMICIN SULFATE
     Dosage: UNK
     Dates: start: 20040311
  9. ESTREVA [Concomitant]
     Active Substance: ESTRADIOL
     Indication: PRODUCT USED FOR UNKNOWN INDICATION
     Dosage: UNK
     Dates: end: 2003
  10. ENANTONE LP [Suspect]
     Active Substance: LEUPROLIDE ACETATE
     Dosage: UNK
     Route: 065
     Dates: start: 20030718, end: 20030718
  11. DUPHASTON [Concomitant]
     Active Substance: DYDROGESTERONE
     Indication: PRODUCT USED FOR UNKNOWN INDICATION
     Dosage: UNK
     Dates: start: 20030322, end: 2003
  12. PROPOFAN                           /00765201/ [Concomitant]
     Indication: PRODUCT USED FOR UNKNOWN INDICATION
     Dosage: UNK
     Dates: start: 2010
  13. GENTALLINE [Concomitant]
     Active Substance: GENTAMICIN SULFATE
     Indication: PRODUCT USED FOR UNKNOWN INDICATION
     Dosage: UNK
     Dates: end: 2003
  14. PONSTYL [Concomitant]
     Active Substance: MEFENAMIC ACID
     Indication: PRODUCT USED FOR UNKNOWN INDICATION
     Dosage: UNK
     Dates: end: 2005
  15. ENANTONE LP [Suspect]
     Active Substance: LEUPROLIDE ACETATE
     Dosage: UNK UNK, Q3MONTHS
     Route: 065
     Dates: start: 20020725, end: 20040120
  16. ACTISKENAN [Concomitant]
     Active Substance: MORPHINE SULFATE
     Indication: PRODUCT USED FOR UNKNOWN INDICATION
     Dosage: UNK
  17. PARACETAMOL [Concomitant]
     Active Substance: ACETAMINOPHEN
     Indication: PRODUCT USED FOR UNKNOWN INDICATION
     Dosage: UNK
  18. LEXOMIL [Concomitant]
     Active Substance: BROMAZEPAM
     Indication: PRODUCT USED FOR UNKNOWN INDICATION
     Dosage: UNK
     Dates: end: 2007
  19. ENANTONE LP [Suspect]
     Active Substance: LEUPROLIDE ACETATE
     Indication: ENDOMETRIOSIS
     Dosage: UNK, Q3MONTHS
     Route: 058
     Dates: start: 19970210
  20. ENANTONE LP [Suspect]
     Active Substance: LEUPROLIDE ACETATE
     Dosage: UNK
     Route: 065
     Dates: start: 20030422, end: 20030422
  21. ENANTONE LP [Suspect]
     Active Substance: LEUPROLIDE ACETATE
     Dosage: UNK
     Route: 065
     Dates: start: 20031022, end: 20031022
  22. ZALDIAR [Concomitant]
     Active Substance: ACETAMINOPHEN\TRAMADOL HYDROCHLORIDE
     Indication: PRODUCT USED FOR UNKNOWN INDICATION
     Dosage: UNK
     Dates: start: 200411
  23. STABLON [Concomitant]
     Active Substance: TIANEPTINE
     Indication: PRODUCT USED FOR UNKNOWN INDICATION
     Dosage: UNK
     Dates: end: 2007
  24. ALTIM [CORTIVAZOL] [Concomitant]
     Active Substance: CORTIVAZOL
     Indication: PRODUCT USED FOR UNKNOWN INDICATION
     Dosage: UNK
     Dates: end: 2011
  25. ENANTONE LP [Suspect]
     Active Substance: LEUPROLIDE ACETATE
     Dosage: UNK
     Route: 065
     Dates: start: 20030612, end: 20030612
  26. SURGESTONE [Concomitant]
     Active Substance: PROMEGESTONE
     Indication: PRODUCT USED FOR UNKNOWN INDICATION
     Dosage: UNK
     Dates: start: 200411
  27. ZAMUDOL [Concomitant]
     Active Substance: TRAMADOL HYDROCHLORIDE
     Indication: PRODUCT USED FOR UNKNOWN INDICATION
     Dosage: UNK
     Dates: start: 20070510
  28. STILNOX [Concomitant]
     Active Substance: ZOLPIDEM TARTRATE
     Indication: PRODUCT USED FOR UNKNOWN INDICATION
     Dosage: UNK
     Dates: start: 20070510
  29. MAGNE B6 [Concomitant]
     Active Substance: MAGNESIUM\PYRIDOXINE
     Indication: PRODUCT USED FOR UNKNOWN INDICATION
     Dosage: UNK UNK, BID
     Dates: start: 20040120, end: 2004
  30. DANATROL [Concomitant]
     Active Substance: DANAZOL
     Indication: PRODUCT USED FOR UNKNOWN INDICATION
     Dosage: UNK
     Dates: end: 2006
  31. CALCIBRONAT [Concomitant]
     Active Substance: CALCIUM BROMOLACTOBIONATE
     Indication: PRODUCT USED FOR UNKNOWN INDICATION
     Dosage: UNK
     Dates: start: 20040120, end: 2004
  32. EFFEXOR [Concomitant]
     Active Substance: VENLAFAXINE HYDROCHLORIDE
     Indication: PRODUCT USED FOR UNKNOWN INDICATION
     Dosage: UNK
     Dates: start: 20070510

REACTIONS (22)
  - Kyphosis [Unknown]
  - Headache [Unknown]
  - Thyroid disorder [Unknown]
  - Chronic fatigue syndrome [Not Recovered/Not Resolved]
  - Hot flush [Not Recovered/Not Resolved]
  - Arthralgia [Not Recovered/Not Resolved]
  - Disability [Unknown]
  - Tendonitis [Unknown]
  - Myalgia [Not Recovered/Not Resolved]
  - Urogenital haemorrhage [Recovered/Resolved]
  - Goitre [Unknown]
  - Fibromyalgia [Unknown]
  - Pain [Recovering/Resolving]
  - Intervertebral disc disorder [Unknown]
  - Depression [Recovering/Resolving]
  - Drug ineffective [Unknown]
  - Blood growth hormone increased [Unknown]
  - Bone pain [Not Recovered/Not Resolved]
  - Sleep disorder [Unknown]
  - Sleep apnoea syndrome [Unknown]
  - Product prescribing issue [Not Recovered/Not Resolved]
  - Sjogren^s syndrome [Unknown]

NARRATIVE: CASE EVENT DATE: 19970212
